FAERS Safety Report 4779611-X (Version None)
Quarter: 2005Q3

REPORT INFORMATION
  Report Type: 
  Country: None (occurrence: None)
  Receive Date: 20050914
  Receipt Date: 20040817
  Transmission Date: 20060218
  Serious: Yes (Hospitalization, Other)
  Sender: FDA-Public Use
  Company Number: 163-20785-04060593

PATIENT
  Age: 76 Year
  Sex: Female

DRUGS (4)
  1. THALOMID [Suspect]
     Indication: MULTIPLE MYELOMA
     Dosage: 200 MG, DAILY, ORAL
     Route: 048
     Dates: start: 20021030, end: 20040412
  2. LASIX [Concomitant]
  3. POTASSIUM (POTASSIUM) [Concomitant]
  4. VITAMIN D [Concomitant]

REACTIONS (4)
  - CHEST PAIN [None]
  - DYSPNOEA [None]
  - HYPOXIA [None]
  - PULMONARY EMBOLISM [None]
